FAERS Safety Report 5726938-0 (Version None)
Quarter: 2008Q2

REPORT INFORMATION
  Report Type: 
  Country: None (occurrence: None)
  Receive Date: 20080502
  Receipt Date: 20080422
  Transmission Date: 20081010
  Serious: Yes (Other)
  Sender: FDA-Public Use
  Company Number: US-PFIZER INC-2008037774

PATIENT
  Sex: Male
  Weight: 63.636 kg

DRUGS (3)
  1. CHANTIX [Suspect]
     Indication: SMOKING CESSATION THERAPY
     Dates: start: 20080421, end: 20080421
  2. NYQUIL [Concomitant]
  3. VICKS DAYQUIL SINUS PRESSURE + PAIN RELIEF W/ IBUPROFEN [Concomitant]

REACTIONS (3)
  - DYSPNOEA [None]
  - PALPITATIONS [None]
  - PANIC ATTACK [None]
